FAERS Safety Report 11147287 (Version 2)
Quarter: 2015Q2

REPORT INFORMATION
  Report Type: Spontaneous
  Country: RO (occurrence: RO)
  Receive Date: 20150528
  Receipt Date: 20150625
  Transmission Date: 20150821
  Serious: Yes (Hospitalization)
  Sender: FDA-Public Use
  Company Number: RO-AMGEN-ROUSP2015051187

PATIENT
  Age: 68 Year
  Sex: Female
  Weight: 110 kg

DRUGS (6)
  1. NORVASC [Concomitant]
     Active Substance: AMLODIPINE BESYLATE
     Dosage: UNK, 2X/DAY
     Route: 048
  2. ENBREL [Suspect]
     Active Substance: ETANERCEPT
     Indication: PSORIASIS
     Dosage: 50 MG, WEEKLY
     Route: 058
     Dates: start: 20120705, end: 20150320
  3. TERTENSIF [Concomitant]
     Indication: HYPERTENSION
     Dosage: 1.5 MG, 1X/DAY
     Route: 048
  4. METFOGAMMA [Concomitant]
     Indication: DIABETES MELLITUS
     Dosage: 850 MG, HALF TABLET PER DAY
  5. TELURA [Concomitant]
     Dosage: UNK, 1X/DAY
  6. TOLURA [Concomitant]
     Dosage: UNK, 1X/DAY
     Route: 048

REACTIONS (1)
  - Deep vein thrombosis [Recovered/Resolved]

NARRATIVE: CASE EVENT DATE: 20150331
